FAERS Safety Report 4648217-5 (Version None)
Quarter: 2005Q2

REPORT INFORMATION
  Report Type: 
  Country: None (occurrence: None)
  Receive Date: 20050331
  Receipt Date: 20050110
  Transmission Date: 20051028
  Serious: No
  Sender: FDA-Public Use
  Company Number: 05P-163-0285836-00

PATIENT
  Age: 53 Year
  Sex: Female
  Weight: 65.7716 kg

DRUGS (8)
  1. HUMIRA [Suspect]
     Indication: RHEUMATOID ARTHRITIS
     Dosage: 40 MG, 1 IN 1 WK, SUBCUTANEOUS
     Route: 058
     Dates: start: 20040701
  2. FOLIC ACID [Concomitant]
  3. PREDNISONE TAB [Concomitant]
  4. TRAMADOL HCL [Concomitant]
  5. ULTRACET [Concomitant]
  6. ALPRAZOLAM [Concomitant]
  7. FLUTICASONE PROPIONATE [Concomitant]
  8. ZYRTEC-D 12 HOUR [Concomitant]

REACTIONS (1)
  - ARTHRALGIA [None]
